FAERS Safety Report 5816486-1 (Version None)
Quarter: 2008Q3

REPORT INFORMATION
  Report Type: 
  Country: None (occurrence: None)
  Receive Date: 20080721
  Receipt Date: 20080709
  Transmission Date: 20090109
  Serious: Yes (Other)
  Sender: FDA-Public Use
  Company Number: JP-MERCK-0807USA01883

PATIENT
  Age: 63 Year
  Sex: Male

DRUGS (3)
  1. PEPCID RPD [Suspect]
     Route: 048
     Dates: start: 20060201, end: 20060301
  2. LIPITOR [Suspect]
     Route: 048
     Dates: start: 20060201, end: 20060301
  3. [THERAPY UNSPECIFIED] [Suspect]
     Route: 065

REACTIONS (1)
  - LIVER DISORDER [None]
